FAERS Safety Report 8734938 (Version 2)
Quarter: 2012Q4

REPORT INFORMATION
  Report Type: Report from Study
  Country: DE (occurrence: DE)
  Receive Date: 20120821
  Receipt Date: 20120828
  Transmission Date: 20130627
  Serious: Yes (Death, Hospitalization)
  Sender: FDA-Public Use
  Company Number: DE-ACTELION-A-US2012-70352

PATIENT
  Age: 72 Year
  Sex: Male

DRUGS (1)
  1. VENTAVIS [Suspect]
     Indication: PULMONARY ARTERIAL HYPERTENSION
     Dosage: 2.5 ug, x6/day
     Route: 055
     Dates: start: 20120718

REACTIONS (5)
  - Death [Fatal]
  - Fall [Unknown]
  - Concussion [Unknown]
  - Contusion [Unknown]
  - Laceration [Unknown]
